FAERS Safety Report 8577062-3 (Version None)
Quarter: 2012Q3

REPORT INFORMATION
  Report Type: 
  Country: None (occurrence: None)
  Receive Date: 20120807
  Receipt Date: 20120717
  Transmission Date: 20120928
  Serious: No
  Sender: FDA-Public Use
  Company Number: US-009507513-2012SP036519

PATIENT

DRUGS (2)
  1. CLARITIN [Suspect]
     Indication: HYPERSENSITIVITY
     Dosage: UNK UNK, UNKNOWN
     Route: 048
     Dates: start: 20120530, end: 20120620
  2. CLARITIN [Suspect]
     Indication: MEDICAL OBSERVATION
     Dosage: UNK UNK, UNKNOWN
     Route: 048

REACTIONS (1)
  - THERAPEUTIC PRODUCT INEFFECTIVE [None]
